FAERS Safety Report 25861360 (Version 2)
Quarter: 2025Q4

REPORT INFORMATION
  Report Type: Report from Study
  Country: US (occurrence: US)
  Receive Date: 20250929
  Receipt Date: 20251120
  Transmission Date: 20260118
  Serious: Yes (Other)
  Sender: ABBVIE
  Company Number: US-ABBVIE-6478684

PATIENT
  Age: 22 Year
  Sex: Male
  Weight: 77.11 kg

DRUGS (2)
  1. RINVOQ [Suspect]
     Active Substance: UPADACITINIB
     Indication: Crohn^s disease
     Dosage: FORM STRENGTH: 45 MG
     Route: 048
     Dates: start: 20241002, end: 202501
  2. RINVOQ [Suspect]
     Active Substance: UPADACITINIB
     Indication: Crohn^s disease
     Dosage: FORM STRENGTH: 45 MG?STARTED IN 2025
     Route: 048

REACTIONS (2)
  - Intestinal obstruction [Recovered/Resolved]
  - Weight increased [Unknown]

NARRATIVE: CASE EVENT DATE: 20241120
